FAERS Safety Report 17323307 (Version 2)
Quarter: 2021Q1

REPORT INFORMATION
  Report Type: Other
  Country: US (occurrence: US)
  Receive Date: 20200127
  Receipt Date: 20210125
  Transmission Date: 20210419
  Serious: Yes (Hospitalization)
  Sender: FDA-Public Use
  Company Number: US-ACORDA-ACO_163099_2020

PATIENT
  Sex: Female

DRUGS (1)
  1. AMPYRA [Suspect]
     Active Substance: DALFAMPRIDINE
     Indication: PRODUCT USED FOR UNKNOWN INDICATION
     Dosage: 10 MILLIGRAM, BID (Q12H)
     Route: 065
     Dates: start: 20121004, end: 202002

REACTIONS (5)
  - Dehydration [Unknown]
  - Asthenia [Unknown]
  - Heart rate decreased [Unknown]
  - Drug ineffective [Unknown]
  - Urinary tract infection [Unknown]
